FAERS Safety Report 8456202-0 (Version None)
Quarter: 2012Q2

REPORT INFORMATION
  Report Type: 
  Country: None (occurrence: None)
  Receive Date: 20120621
  Receipt Date: 20120613
  Transmission Date: 20120825
  Serious: Yes (Hospitalization)
  Sender: FDA-Public Use
  Company Number: CA-ROCHE-1073485

PATIENT
  Sex: Female
  Weight: 100 kg

DRUGS (14)
  1. MABTHERA [Suspect]
     Indication: RHEUMATOID ARTHRITIS
     Route: 042
     Dates: start: 20091015
  2. ATENOLOL [Concomitant]
  3. ATIVAN [Concomitant]
  4. METHOTREXATE [Concomitant]
  5. COUMADIN [Concomitant]
  6. SYNTHROID [Concomitant]
  7. DIPHENHYDRAMINE HCL [Concomitant]
     Indication: PREMEDICATION
     Route: 048
     Dates: start: 20111123, end: 20111123
  8. NEXIUM [Concomitant]
  9. LEUCOVORIN CALCIUM [Concomitant]
  10. METHYLPREDNISOLONE [Concomitant]
     Indication: PREMEDICATION
     Route: 042
     Dates: start: 20111123, end: 20111123
  11. FUROSEMIDE [Concomitant]
  12. PREDNISONE TAB [Concomitant]
  13. ACETAMINOPHEN [Concomitant]
     Indication: PREMEDICATION
     Route: 048
     Dates: start: 20111123, end: 20111123
  14. FOSAMAX [Concomitant]

REACTIONS (2)
  - MYOCARDIAL INFARCTION [None]
  - ARTHRALGIA [None]
